FAERS Safety Report 23632620 (Version 2)
Quarter: 2024Q2

REPORT INFORMATION
  Report Type: Spontaneous
  Country: GB (occurrence: None)
  Receive Date: 20240314
  Receipt Date: 20240415
  Transmission Date: 20240716
  Serious: Yes (Hospitalization, Other)
  Sender: FDA-Public Use
  Company Number: 2023A128823

PATIENT
  Sex: Female
  Weight: 98.8 kg

DRUGS (14)
  1. FASENRA [Suspect]
     Active Substance: BENRALIZUMAB
     Indication: Asthma
     Route: 058
     Dates: start: 202004, end: 202401
  2. FLUTICASONE FUROATE\VILANTEROL TRIFENATATE [Concomitant]
     Active Substance: FLUTICASONE FUROATE\VILANTEROL TRIFENATATE
     Dosage: 1 PUFF, DAILY
  3. ALBUTEROL [Concomitant]
     Active Substance: ALBUTEROL
  4. PREDNISOLONE [Concomitant]
     Active Substance: PREDNISOLONE
  5. RANITIDINE [Concomitant]
     Active Substance: RANITIDINE
  6. CETIRIZINE HYDROCHLORIDE [Concomitant]
     Active Substance: CETIRIZINE HYDROCHLORIDE
  7. OCP [Concomitant]
  8. VITAMIN D NOS [Concomitant]
     Active Substance: VITAMIN D NOS
  9. IVABRADINE [Concomitant]
     Active Substance: IVABRADINE
  10. CHOLESTYRAMINE [Concomitant]
     Active Substance: CHOLESTYRAMINE
  11. FOLIC ACID [Concomitant]
     Active Substance: FOLIC ACID
  12. IRON SUPLIMENT [Concomitant]
  13. BENRALIZUMAB [Concomitant]
     Active Substance: BENRALIZUMAB
  14. FLUTICASONE ACCHALER [Concomitant]

REACTIONS (4)
  - Drug ineffective [Unknown]
  - Exposure during pregnancy [Unknown]
  - Neutralising antibodies positive [Unknown]
  - Eosinophil count increased [Unknown]
